FAERS Safety Report 5619265-3 (Version None)
Quarter: 2008Q1

REPORT INFORMATION
  Report Type: 
  Country: None (occurrence: None)
  Receive Date: 20080205
  Receipt Date: 20080115
  Transmission Date: 20080703
  Serious: Yes (Death)
  Sender: FDA-Public Use
  Company Number: 2008005730

PATIENT
  Age: 62 Year
  Sex: Male

DRUGS (46)
  1. COMBACTAM (SULBACTAM) [Suspect]
     Indication: INFECTION PROPHYLAXIS
     Dosage: 4 GRAM (1 GRAM, 4 IN 1 D), INTRAVENOUS
     Route: 042
     Dates: start: 20040730, end: 20040806
  2. FRAGMIN [Suspect]
     Indication: INFECTION PROPHYLAXIS
     Dosage: 2500 I.U.
     Dates: start: 20040720
  3. DIFLUCAN [Suspect]
     Indication: FUNGAL INFECTION
     Dosage: 300 MG (100 MG, 3 IN 1 D), ORAL
     Route: 048
     Dates: start: 20040728
  4. PANTOPRAZOLE SODIUM [Suspect]
     Indication: PROPHYLAXIS AGAINST GASTROINTESTINAL ULCER
     Dosage: 40 MG (40 MG, 1 IN 1 D) ORAL
     Route: 048
     Dates: start: 20040420, end: 20040721
  5. PANTOPRAZOLE SODIUM [Suspect]
     Indication: PROPHYLAXIS AGAINST GASTROINTESTINAL ULCER
     Dosage: 40 MG (40 MG, 1 IN 1 D) ORAL
     Route: 048
     Dates: start: 20040724, end: 20040724
  6. ACETYLCYSTEINE [Suspect]
     Indication: RESPIRATORY DISORDER
     Dosage: 600 MG (600 MG, 1 IN 1 D), ORAL
     Route: 048
     Dates: start: 20040420, end: 20040728
  7. CIPROFLOXACIN HCL [Suspect]
     Indication: RESPIRATORY DISORDER
     Dosage: 500 MG, ORAL
     Route: 048
     Dates: start: 20040420, end: 20040728
  8. CIPROFLOXACIN HCL [Suspect]
     Indication: RESPIRATORY DISORDER
     Dosage: 500 MG, ORAL
     Route: 048
     Dates: start: 20040728, end: 20040801
  9. CIPROFLOXACIN HCL [Suspect]
     Indication: RESPIRATORY DISORDER
     Dosage: 500 MG, ORAL
     Route: 048
     Dates: start: 20040804, end: 20040804
  10. RAMIPRIL [Suspect]
     Indication: HYPERTENSION
     Dosage: ORAL
     Route: 048
     Dates: start: 20040717, end: 20040717
  11. RAMIPRIL [Suspect]
     Indication: HYPERTENSION
     Dosage: ORAL
     Route: 048
     Dates: start: 20040720
  12. NEXIUM [Suspect]
     Indication: PROPHYLAXIS AGAINST GASTROINTESTINAL ULCER
     Dosage: 60 MG (20 MG, 3 IN 1 D), ORAL
     Route: 048
     Dates: start: 20040717, end: 20040717
  13. NEXIUM [Suspect]
     Indication: PROPHYLAXIS AGAINST GASTROINTESTINAL ULCER
     Dosage: 60 MG (20 MG, 3 IN 1 D), ORAL
     Route: 048
     Dates: start: 20040720
  14. PROGRAF [Suspect]
     Indication: RESTLESS LEGS SYNDROME
     Dosage: ORAL
     Route: 048
     Dates: start: 20040717
  15. MERONEM (MEROPENEM) [Suspect]
     Indication: INFECTION PROPHYLAXIS
     Dosage: 3 GRAM (1 GRAM, 3 IN 1 D), INTRAVENOUS
     Route: 042
     Dates: start: 20040718, end: 20040722
  16. MERONEM (MEROPENEM) [Suspect]
     Indication: INFECTION PROPHYLAXIS
     Dosage: 3 GRAM (1 GRAM, 3 IN 1 D), INTRAVENOUS
     Route: 042
     Dates: start: 20040803, end: 20040806
  17. ACYCLOVIR [Suspect]
     Indication: ANTIVIRAL PROPHYLAXIS
     Dosage: 600 MG (200 MG, 3 IN 1 D), ORAL
     Route: 048
     Dates: start: 20040720, end: 20040722
  18. ACYCLOVIR [Suspect]
     Indication: ANTIVIRAL PROPHYLAXIS
     Dosage: 600 MG (200 MG, 3 IN 1 D), ORAL
     Route: 048
     Dates: start: 20040724, end: 20040728
  19. CICLOPIROX OLAMINE (CICLOPIROX OLAMINE) [Suspect]
     Indication: ANTIVIRAL PROPHYLAXIS
     Dosage: TOPICAL
     Route: 061
     Dates: start: 20040720
  20. PREDNISOLONE [Suspect]
     Dosage: INTRAVENOUS
     Route: 042
     Dates: start: 20040720
  21. PSORCUTAN (CALCIPOTRIOL) [Suspect]
     Indication: PSORIASIS
     Dosage: TOPICAL
     Route: 061
     Dates: start: 20040720
  22. PRAMIPEXOLE DIHYDROCHLORIDE [Suspect]
     Indication: EXTRAPYRAMIDAL DISORDER
     Dosage: 320 MG, ORAL
     Route: 048
     Dates: start: 20040720
  23. POTASSIUM CHLORIDE [Suspect]
     Indication: HYPOKALAEMIA
     Dosage: ORAL
     Route: 048
     Dates: start: 20040723, end: 20040724
  24. SOLU-DECORTIN-H (PREDNISOLONE SODIUM SUCCINATE) [Suspect]
     Indication: PROPHYLAXIS
     Dosage: 750 MG, INTRAVENOUS
     Route: 042
     Dates: start: 20040723, end: 20040726
  25. NOCTAMID (LORMETAZEPAM) [Suspect]
     Indication: SLEEP DISORDER
     Dosage: 1 MG, ORAL
     Route: 048
     Dates: start: 20040723, end: 20040723
  26. NOCTAMID (LORMETAZEPAM) [Suspect]
     Indication: SLEEP DISORDER
     Dosage: 1 MG, ORAL
     Route: 048
     Dates: start: 20040725, end: 20040726
  27. PLACEBO (PLACEBO) [Suspect]
     Indication: SLEEP DISORDER
     Dosage: ORAL
     Route: 048
     Dates: start: 20040728, end: 20040728
  28. TRAMADOL HCL [Suspect]
     Indication: PAIN
     Dosage: ORAL
     Route: 048
     Dates: start: 20040728, end: 20040728
  29. TRAMADOL HCL [Suspect]
     Indication: PAIN
     Dosage: ORAL
     Route: 048
     Dates: start: 20040730, end: 20040801
  30. PIPERACILLIN SODIUM [Suspect]
     Indication: INFECTION PROPHYLAXIS
     Dosage: 8 MG (2 MG, 4 IN 1 D), INTRAVENOUS
     Route: 042
     Dates: start: 20040730, end: 20040806
  31. VANCOMYCIN [Suspect]
     Indication: INFECTION PROPHYLAXIS
     Dosage: 1 GRAM, INTRAVENOUS
     Route: 042
     Dates: start: 20040801, end: 20040801
  32. GLUCOSE (GLUCOSE) [Suspect]
     Dosage: INTRAVENOUS
     Route: 042
     Dates: start: 20040801, end: 20040801
  33. METOCLOPRAMIDE [Suspect]
     Indication: NAUSEA
     Dosage: 45 DROPS, ORAL
     Route: 048
     Dates: start: 20040801, end: 20040801
  34. ACETYLCYSTEINE [Suspect]
     Dosage: 900 MG 300 MG, 3 IN 1 D), INTRAVENOUS
     Route: 042
     Dates: start: 20040801, end: 20040806
  35. SODIUM CHLORIDE 0.9% [Suspect]
     Indication: FLUID REPLACEMENT
     Dosage: INTRAVENOUS
     Route: 042
     Dates: start: 20040801, end: 20040801
  36. KONAKION [Suspect]
     Dosage: ORAL
     Route: 048
     Dates: start: 20040802, end: 20040805
  37. ACETAMINOPHEN [Suspect]
     Indication: PAIN
     Dosage: RECTAL
     Route: 054
     Dates: start: 20040802, end: 20040802
  38. KANAVIT (PHYTOMENADIONE) [Suspect]
     Dates: start: 20040802
  39. LASIX [Suspect]
     Indication: OEDEMA
     Dosage: 40 MG, ORAL
     Route: 048
     Dates: start: 20040803, end: 20040803
  40. FORTRAL (PENTAZOCINE) [Suspect]
     Indication: ENDOSCOPIC RETROGRADE CHOLANGIOPANCREATOGRAPHY
     Dosage: INTRAVENOUS
     Route: 042
     Dates: start: 20040804, end: 20040804
  41. MIDAZOLAM HCL [Suspect]
     Indication: ENDOSCOPIC RETROGRADE CHOLANGIOPANCREATOGRAPHY
     Dosage: INTRAVENOUS
     Route: 042
     Dates: start: 20040804, end: 20040804
  42. SAB SIMPLEX [Concomitant]
  43. URSO FALK [Concomitant]
  44. METOPROLOL TARTRATE [Concomitant]
  45. ATROPINE SULFATE [Concomitant]
  46. TUTOFUSIN (AMINO ACIDS NOS, ELECTOLYTES NOS, VITAMINS NOS) [Concomitant]

REACTIONS (6)
  - HYPOKALAEMIA [None]
  - NAUSEA [None]
  - OEDEMA [None]
  - SLEEP DISORDER [None]
  - STEVENS-JOHNSON SYNDROME [None]
  - TOXIC EPIDERMAL NECROLYSIS [None]
